FAERS Safety Report 9457777 (Version 4)
Quarter: 2013Q4

REPORT INFORMATION
  Report Type: Spontaneous
  Country: BE (occurrence: BE)
  Receive Date: 20130814
  Receipt Date: 20131227
  Transmission Date: 20140711
  Serious: Yes (Death, Hospitalization, Other)
  Sender: FDA-Public Use
  Company Number: BE-CELGENEUS-013-21880-13073481

PATIENT
  Age: 65 Year
  Sex: Male
  Weight: 69 kg

DRUGS (15)
  1. REVLIMID [Suspect]
     Indication: ANGIOIMMUNOBLASTIC T-CELL LYMPHOMA
     Dosage: 25 MILLIGRAM
     Route: 048
     Dates: start: 20130315
  2. REVLIMID [Suspect]
     Dosage: 25 MILLIGRAM
     Route: 048
     Dates: start: 20130930, end: 20131020
  3. CORTICOIDS [Concomitant]
     Indication: PRODUCT USED FOR UNKNOWN INDICATION
     Route: 065
  4. NOVONORM [Concomitant]
     Indication: DIABETES MELLITUS
     Route: 048
  5. GLUCOPHAGE [Concomitant]
     Indication: DIABETES MELLITUS
     Dosage: 1000 MILLIGRAM
     Route: 048
  6. ZOVIRAX [Concomitant]
     Indication: PROPHYLAXIS
     Route: 048
  7. ZANTAC [Concomitant]
     Indication: PROPHYLAXIS AGAINST GASTROINTESTINAL ULCER
     Dosage: 150 MILLIGRAM
     Route: 048
  8. STEOVIT D3 [Concomitant]
     Indication: PROPHYLAXIS
     Route: 048
  9. ZOCOR [Concomitant]
     Indication: HYPERTRIGLYCERIDAEMIA
     Route: 048
  10. TRIBVIT [Concomitant]
     Indication: PROPHYLAXIS
     Route: 048
  11. MEDROL [Concomitant]
     Indication: PRODUCT USED FOR UNKNOWN INDICATION
     Dosage: 8 MILLIGRAM
     Route: 065
  12. DIFLUCAN [Concomitant]
     Indication: PRODUCT USED FOR UNKNOWN INDICATION
     Dosage: 50 MILLIGRAM
     Route: 065
  13. BACTRIM FORTE [Concomitant]
     Indication: PRODUCT USED FOR UNKNOWN INDICATION
     Route: 065
  14. CYMEVENE [Concomitant]
     Indication: PRODUCT USED FOR UNKNOWN INDICATION
     Dosage: 700 MILLIGRAM
     Route: 065
  15. MAGNESIUM [Concomitant]
     Indication: PRODUCT USED FOR UNKNOWN INDICATION
     Dosage: 12
     Route: 065

REACTIONS (3)
  - Pseudomonal sepsis [Fatal]
  - Tumour necrosis [Not Recovered/Not Resolved]
  - Urinary tract infection pseudomonal [Recovered/Resolved]
